FAERS Safety Report 19001676 (Version 1)
Quarter: 2021Q1

REPORT INFORMATION
  Report Type: Spontaneous
  Country: US (occurrence: US)
  Receive Date: 20210312
  Receipt Date: 20210312
  Transmission Date: 20210420
  Serious: No
  Sender: FDA-Public Use
  Company Number: US-FARMAPROD-202011-1581

PATIENT
  Age: 44 Year
  Sex: Male

DRUGS (3)
  1. OXERVATE [Suspect]
     Active Substance: CENEGERMIN-BKBJ
     Indication: KERATITIS
     Route: 047
  2. LIFITEGRAST [Concomitant]
     Active Substance: LIFITEGRAST
     Route: 047
  3. STEROID [Concomitant]
     Active Substance: UNSPECIFIED INGREDIENT
     Route: 047

REACTIONS (1)
  - Disease recurrence [Unknown]
